FAERS Safety Report 9023695 (Version 1)
Quarter: 2013Q1

REPORT INFORMATION
  Report Type: Spontaneous
  Country: US (occurrence: US)
  Receive Date: 20130121
  Receipt Date: 20130121
  Transmission Date: 20140127
  Serious: Yes (Other)
  Sender: FDA-Public Use
  Company Number: US-ASTELLAS-2013US000735

PATIENT
  Sex: Female
  Weight: 93 kg

DRUGS (2)
  1. VESICARE [Suspect]
     Indication: URINARY INCONTINENCE
     Dosage: UNK
     Route: 048
  2. GELNIQUE [Suspect]
     Indication: URINARY INCONTINENCE

REACTIONS (4)
  - Drug ineffective [Unknown]
  - Renal disorder [Unknown]
  - Nocturia [Unknown]
  - Constipation [Unknown]
